FAERS Safety Report 22064055 (Version 3)
Quarter: 2023Q1

REPORT INFORMATION
  Report Type: Spontaneous
  Country: US (occurrence: US)
  Receive Date: 20230306
  Receipt Date: 20230329
  Transmission Date: 20230418
  Serious: No
  Sender: FDA-Public Use
  Company Number: US-002147023-NVSC2023US049424

PATIENT
  Sex: Female
  Weight: 101.6 kg

DRUGS (1)
  1. COMBIPATCH [Suspect]
     Active Substance: ESTRADIOL\NORETHINDRONE ACETATE
     Indication: Menopause
     Dosage: 0.05/0.14 MG, EVERY 3 TO 4 DAYS (THURSDAY AND SUNDAYS)
     Route: 062
     Dates: start: 2022

REACTIONS (6)
  - Product residue present [Not Recovered/Not Resolved]
  - Application site warmth [Recovered/Resolved]
  - Application site pruritus [Recovering/Resolving]
  - Application site erythema [Recovering/Resolving]
  - Application site inflammation [Recovered/Resolved]
  - Application site pain [Unknown]
